FAERS Safety Report 14304634 (Version 1)
Quarter: 2017Q4

REPORT INFORMATION
  Report Type: Spontaneous
  Country: FR (occurrence: FR)
  Receive Date: 20171219
  Receipt Date: 20171219
  Transmission Date: 20180321
  Serious: Yes (Other)
  Sender: FDA-Public Use
  Company Number: FR-OTSUKA-16155731

PATIENT
  Age: 21 Year
  Sex: Male

DRUGS (4)
  1. STRESAM [Concomitant]
     Active Substance: ETIFOXINE
     Indication: STRESS
     Dosage: UNK
     Route: 048
     Dates: start: 2010
  2. ABILIFY [Suspect]
     Active Substance: ARIPIPRAZOLE
     Indication: DEPRESSION
     Dosage: UNK UNK, QD
     Route: 048
     Dates: start: 20111004, end: 20111006
  3. MIRTAZAPINE. [Concomitant]
     Active Substance: MIRTAZAPINE
     Indication: DEPRESSION
     Dosage: UNK
     Route: 048
     Dates: start: 201104
  4. ATARAX [Concomitant]
     Active Substance: HYDROXYZINE HYDROCHLORIDE
     Indication: STRESS
     Dosage: 1DF= STRENGTH-25 UNIT NOS
     Route: 048
     Dates: start: 201002

REACTIONS (4)
  - Muscle contracture [Recovered/Resolved]
  - Speech disorder [Recovered/Resolved]
  - Pain [Recovered/Resolved]
  - Dysstasia [Recovered/Resolved]

NARRATIVE: CASE EVENT DATE: 20111006
